FAERS Safety Report 7728363-X (Version None)
Quarter: 2011Q3

REPORT INFORMATION
  Report Type: 
  Country: None (occurrence: None)
  Receive Date: 20110905
  Receipt Date: 20110902
  Transmission Date: 20111222
  Serious: Yes (Death, Hospitalization)
  Sender: FDA-Public Use
  Company Number: PHHY2011CR77994

PATIENT
  Age: 74 Year
  Sex: Female

DRUGS (4)
  1. AMLODIPINE [Concomitant]
     Dosage: UNK UKN, UNK
  2. INSULIN [Concomitant]
     Dosage: UNK UKN, UNK
  3. EXELON [Suspect]
     Dosage: EXELON PATCH 10, DAILY
     Route: 062
  4. EXELON [Suspect]
     Indication: DEMENTIA ALZHEIMER'S TYPE
     Dosage: EXELON PATCH 5, DAILY
     Route: 062
     Dates: start: 20100501

REACTIONS (4)
  - DEATH [None]
  - UTERINE MASS [None]
  - NEOPLASM MALIGNANT [None]
  - WEIGHT DECREASED [None]
